FAERS Safety Report 10950678 (Version 1)
Quarter: 2015Q1

REPORT INFORMATION
  Report Type: Spontaneous
  Country: BR (occurrence: BR)
  Receive Date: 20150324
  Receipt Date: 20150324
  Transmission Date: 20150721
  Serious: Yes (Hospitalization)
  Sender: FDA-Public Use
  Company Number: BR-PFIZER INC-2015102103

PATIENT
  Age: 70 Year
  Sex: Male

DRUGS (2)
  1. FRONTAL [Suspect]
     Active Substance: ALPRAZOLAM
     Indication: ANXIETY
     Dosage: 2 TABLETS OF 2MG WITH UNSPECIFIED FREQUENCY
  2. FRONTAL [Suspect]
     Active Substance: ALPRAZOLAM
     Indication: INSOMNIA

REACTIONS (2)
  - Loss of consciousness [Unknown]
  - Somnolence [Unknown]
